FAERS Safety Report 9956929 (Version 1)
Quarter: 2014Q1

REPORT INFORMATION
  Report Type: Report from Study
  Country: US (occurrence: US)
  Receive Date: 20140304
  Receipt Date: 20140304
  Transmission Date: 20141002
  Serious: No
  Sender: FDA-Public Use
  Company Number: US-ABBVIE-13P-163-1097260-00

PATIENT
  Age: 52 Year
  Sex: Female

DRUGS (19)
  1. HUMIRA [Suspect]
     Indication: RHEUMATOID ARTHRITIS
     Dates: start: 201303
  2. LEVAQUIN [Suspect]
     Indication: URINARY TRACT INFECTION
  3. LEVAQUIN [Suspect]
     Indication: PHARYNGITIS STREPTOCOCCAL
  4. LEVAQUIN [Suspect]
     Indication: EAR INFECTION
  5. METHOTREXATE [Suspect]
     Indication: RHEUMATOID ARTHRITIS
  6. PREDNISONE [Concomitant]
     Indication: PRODUCT USED FOR UNKNOWN INDICATION
  7. WELLBUTRIN [Concomitant]
     Indication: ANXIETY
  8. XANAX [Concomitant]
     Indication: ANXIETY
  9. CYMBALTA [Concomitant]
     Indication: PAIN
  10. TOPROL [Concomitant]
     Indication: HYPERTENSION
  11. VERAPAMIL [Concomitant]
     Indication: HYPERTENSION
  12. COZAAR [Concomitant]
     Indication: HYPERTENSION
  13. ADVAIR [Concomitant]
     Indication: ASTHMA
  14. COMBIVENT [Concomitant]
     Indication: ASTHMA
  15. NITROSTAT [Concomitant]
     Indication: PRODUCT USED FOR UNKNOWN INDICATION
  16. PROTONIX [Concomitant]
     Indication: GASTRIC DISORDER
  17. HUMALOG [Concomitant]
     Indication: PRODUCT USED FOR UNKNOWN INDICATION
     Dosage: SLIDING SCALE
  18. LANTUS [Concomitant]
     Indication: DIABETES MELLITUS
     Dosage: EVERY NIGHT
  19. SOMA [Concomitant]
     Indication: MUSCLE SPASMS

REACTIONS (7)
  - Fatigue [Not Recovered/Not Resolved]
  - Pharyngitis streptococcal [Not Recovered/Not Resolved]
  - Ear infection [Not Recovered/Not Resolved]
  - Urinary tract infection [Not Recovered/Not Resolved]
  - Fungal infection [Not Recovered/Not Resolved]
  - Diarrhoea [Not Recovered/Not Resolved]
  - Abdominal pain [Not Recovered/Not Resolved]
